FAERS Safety Report 7021630-7 (Version None)
Quarter: 2010Q3

REPORT INFORMATION
  Report Type: 
  Country: None (occurrence: None)
  Receive Date: 20100929
  Receipt Date: 20100916
  Transmission Date: 20110219
  Serious: Yes (Hospitalization, Other)
  Sender: FDA-Public Use
  Company Number: PHEH2007US04665

PATIENT
  Sex: Female
  Weight: 62.585 kg

DRUGS (92)
  1. ZOMETA [Suspect]
     Indication: OSTEOPOROSIS
     Dosage: UNK
  2. AREDIA [Suspect]
     Indication: OSTEOPOROSIS
     Dosage: UNK
     Route: 042
  3. COREG [Concomitant]
     Dosage: 3.125 MG, BID
  4. PERIDEX [Concomitant]
  5. CYTOXAN [Concomitant]
     Indication: SYSTEMIC LUPUS ERYTHEMATOSUS
  6. PREDNISONE [Concomitant]
     Dosage: 15 MG, QD
     Dates: start: 19860101
  7. PLAQUENIL [Concomitant]
     Dosage: 200 MG, BID
  8. PRILOSEC [Concomitant]
  9. AMBIEN [Concomitant]
     Dosage: 12.5 / QHS
  10. CALCIUM CITRATE [Concomitant]
  11. BELLERGAL [Concomitant]
  12. DONNATAL [Concomitant]
     Dosage: 1 TAB, QD
  13. ASACOL [Concomitant]
     Dosage: 1200 MG, TID
  14. NEXIUM [Concomitant]
     Dosage: 40 MG, BID
  15. PERCOCET [Concomitant]
     Dosage: 5-325 MG / PRN
  16. FLEXERIL [Concomitant]
     Dosage: 5 MG
  17. AMANTADINE [Concomitant]
  18. CORTISONE [Concomitant]
  19. ROCEPHIN [Concomitant]
     Dosage: 2 GM / QD
  20. SINGULAIR [Concomitant]
     Dosage: 10 MG
  21. FORTEO [Concomitant]
     Dosage: 750 MCG / DAILY AM
  22. ZOFRAN [Concomitant]
     Dosage: 8 MG / PRN
  23. LASIX [Concomitant]
     Dosage: 20 MG
  24. CLINDAMYCIN [Concomitant]
     Dosage: 900 MG / Q8
  25. INVANZ [Concomitant]
     Dosage: 1 GM / DAILY
  26. LEVAQUIN [Concomitant]
     Dosage: UNK
  27. ZYVOX [Concomitant]
     Dosage: UNK
  28. IMURAN [Concomitant]
     Dosage: 50 MG, QD
  29. VANCOMYCIN [Concomitant]
     Dosage: UNK
  30. AUGMENTIN '125' [Concomitant]
     Dosage: UNK
  31. AVELOX [Concomitant]
     Dosage: UNK
  32. ANAGRELIDE HCL [Concomitant]
  33. METHOTREXATE [Concomitant]
  34. ENBREL [Concomitant]
  35. ACTOS [Concomitant]
     Dosage: 30 MG, QD
  36. CIPROFLOXACIN [Concomitant]
     Dosage: 500 MG, UNK
  37. MEPRON [Concomitant]
  38. CEFTIN [Concomitant]
     Dosage: 500 MG, UNK
  39. SALAGEN [Concomitant]
     Dosage: UNK
  40. MOBIC [Concomitant]
     Dosage: 7.5 MG, PRN
  41. FLAGYL [Concomitant]
  42. EVISTA [Concomitant]
     Dosage: 60 MG, UNK
  43. BONIVA [Concomitant]
     Dosage: UNK
     Dates: start: 20070101
  44. BEXTRA [Concomitant]
     Dosage: UNK
     Dates: start: 20010101
  45. LYRICA [Concomitant]
     Dosage: UNK
     Dates: start: 20080101
  46. DILAUDID [Concomitant]
     Dosage: UNK
  47. VICODIN [Concomitant]
     Dosage: UNK
  48. PRANDIN ^KUHN^ [Concomitant]
     Dosage: UNK
  49. ZOCOR [Concomitant]
     Dosage: UNK
  50. LIDODERM [Concomitant]
     Dosage: UNK
  51. CALCITONIN-SALMON [Concomitant]
     Dosage: UNK
  52. WELCHOL [Concomitant]
     Dosage: UNK
  53. SOL MEDROL [Concomitant]
     Dosage: UNK
  54. TAGAMET [Concomitant]
     Dosage: UNK
  55. DIPRIVAN [Concomitant]
     Dosage: UNK
  56. COMPAZINE [Concomitant]
     Dosage: UNK
  57. PROVIGIL [Concomitant]
     Dosage: UNK
  58. MEFOXIN [Concomitant]
     Dosage: UNK
  59. PRAVACHOL [Concomitant]
     Dosage: UNK
  60. GAMIMUNE [Concomitant]
     Dosage: UNK
  61. DARBEPOETIN ALFA [Concomitant]
     Dosage: UNK
  62. MYCOSTATIN [Concomitant]
     Dosage: UNK
  63. KEFZOL [Concomitant]
     Dosage: UNK
  64. REGELAN [Concomitant]
     Dosage: UNK
  65. CLEOCIN [Concomitant]
     Dosage: UNK
  66. DECADRON [Concomitant]
     Dosage: UNK
  67. DIFLUCAN [Concomitant]
     Dosage: 100 MG, UNK
  68. EXFORGE (VALSARTAN/AMLODIPINE BESILATE) [Concomitant]
     Dosage: 5/320 MG
  69. ALBUTEROL [Concomitant]
  70. FLOVENT [Concomitant]
  71. DARVOCET-N 100 [Concomitant]
  72. ALLOPURINOL [Concomitant]
  73. CARAFATE [Concomitant]
  74. FLONASE [Concomitant]
  75. BACTROBAN                               /NET/ [Concomitant]
  76. KEFLEX [Concomitant]
  77. SUDAFED 12 HOUR [Concomitant]
  78. SPECTAZOLE [Concomitant]
  79. BEROCCA                                 /SCH/ [Concomitant]
  80. NEPHRO-VITE [Concomitant]
  81. PROTONIX [Concomitant]
  82. VITAPLEX [Concomitant]
  83. ASPIRIN [Concomitant]
  84. LOMOTIL [Concomitant]
  85. DEMEROL [Concomitant]
  86. FAMVIR                                  /NET/ [Concomitant]
  87. OXYCODONE [Concomitant]
  88. NORVASK [Concomitant]
  89. AGRYLIN [Concomitant]
     Indication: THROMBOCYTOPENIA
     Dosage: 0.5 MG, BID
  90. AVANDIA [Concomitant]
     Dosage: 2 MG, QD
  91. MINOCYCLINE HCL [Concomitant]
  92. ASPIRIN [Concomitant]
     Dosage: 325 MG, QD

REACTIONS (100)
  - ABDOMINAL PAIN [None]
  - ADRENAL INSUFFICIENCY [None]
  - ANAEMIA [None]
  - APPENDICECTOMY [None]
  - APPENDICITIS [None]
  - APTYALISM [None]
  - ASTHMA [None]
  - BONE DEBRIDEMENT [None]
  - BONE DISORDER [None]
  - BONE EROSION [None]
  - BONE FRAGMENTATION [None]
  - BONE OPERATION [None]
  - BONE PAIN [None]
  - BRONCHOPNEUMONIA [None]
  - BURSITIS [None]
  - CELLULITIS [None]
  - COLITIS ULCERATIVE [None]
  - COR PULMONALE CHRONIC [None]
  - DENTAL CARIES [None]
  - DENTAL OPERATION [None]
  - DEVICE FAILURE [None]
  - DIARRHOEA [None]
  - DIVERTICULUM [None]
  - DYSPHAGIA [None]
  - ENDODONTIC PROCEDURE [None]
  - ENTERITIS [None]
  - ENTEROCOCCAL INFECTION [None]
  - ESCHERICHIA INFECTION [None]
  - ESSENTIAL THROMBOCYTHAEMIA [None]
  - EXOSTOSIS [None]
  - EYE LASER SURGERY [None]
  - FACIAL NEURALGIA [None]
  - FATIGUE [None]
  - FOOT FRACTURE [None]
  - GASTRODUODENITIS [None]
  - GASTROOESOPHAGEAL REFLUX DISEASE [None]
  - GENERALISED OEDEMA [None]
  - GINGIVAL INFECTION [None]
  - GINGIVAL PAIN [None]
  - GINGIVAL SWELLING [None]
  - GINGIVITIS [None]
  - HAEMANGIOMA [None]
  - HUMERUS FRACTURE [None]
  - HYPERGLYCAEMIA [None]
  - HYPOAESTHESIA [None]
  - HYPOGAMMAGLOBULINAEMIA [None]
  - JOINT DISLOCATION [None]
  - LUMBAR SPINAL STENOSIS [None]
  - LUNG DISORDER [None]
  - MALOCCLUSION [None]
  - METASTATIC NEOPLASM [None]
  - MOUTH ULCERATION [None]
  - NASAL CONGESTION [None]
  - OEDEMA PERIPHERAL [None]
  - OLIGURIA [None]
  - OSTEITIS [None]
  - OSTEITIS DEFORMANS [None]
  - OSTEOARTHRITIS [None]
  - OSTEOLYSIS [None]
  - OSTEOMYELITIS [None]
  - OSTEONECROSIS OF JAW [None]
  - OSTEOPENIA [None]
  - OSTEOPOROSIS [None]
  - OTITIS EXTERNA [None]
  - PAIN [None]
  - PAIN IN JAW [None]
  - PELVIC FRACTURE [None]
  - PERIODONTAL DISEASE [None]
  - PERIODONTITIS [None]
  - PLATELET COUNT INCREASED [None]
  - PLEURAL EFFUSION [None]
  - POOR DENTAL CONDITION [None]
  - PULPITIS DENTAL [None]
  - RECTAL HAEMORRHAGE [None]
  - RENAL FAILURE [None]
  - ROTATOR CUFF SYNDROME [None]
  - SCAB [None]
  - SCLERODERMA [None]
  - SENSORY LOSS [None]
  - SEPSIS [None]
  - SINUSITIS [None]
  - SPINAL OSTEOARTHRITIS [None]
  - STOMATITIS [None]
  - SWELLING [None]
  - SWELLING FACE [None]
  - SYSTEMIC LUPUS ERYTHEMATOSUS [None]
  - THROMBOCYTOSIS [None]
  - TOOTH ABSCESS [None]
  - TOOTH DISORDER [None]
  - TOOTH EXTRACTION [None]
  - TOOTH INJURY [None]
  - TRANSIENT ISCHAEMIC ATTACK [None]
  - TRICUSPID VALVE INCOMPETENCE [None]
  - TYMPANIC MEMBRANE DISORDER [None]
  - UTERINE ENLARGEMENT [None]
  - UTERINE LEIOMYOMA [None]
  - VASCULITIS [None]
  - VITREOUS DETACHMENT [None]
  - WEGENER'S GRANULOMATOSIS [None]
  - WOUND INFECTION STAPHYLOCOCCAL [None]
